FAERS Safety Report 18067084 (Version 2)
Quarter: 2020Q4

REPORT INFORMATION
  Report Type: Spontaneous
  Country: US (occurrence: US)
  Receive Date: 20200724
  Receipt Date: 20201012
  Transmission Date: 20210113
  Serious: Yes (Other)
  Sender: FDA-Public Use
  Company Number: US-BRISTOL-MYERS SQUIBB COMPANY-BMS-2020-057909

PATIENT
  Sex: Female
  Weight: 65.77 kg

DRUGS (3)
  1. COUMADIN [Suspect]
     Active Substance: WARFARIN SODIUM
     Indication: ATRIAL FIBRILLATION
     Dosage: 5MG TABLET 2 NIGHTS A WEEK AND 1/2 5MG TABLET (2.5 MG) 5 NIGHTS A WEEK
     Route: 048
     Dates: start: 2015
  2. SYNTHROID [Concomitant]
     Active Substance: LEVOTHYROXINE SODIUM
     Indication: PRODUCT USED FOR UNKNOWN INDICATION
     Dosage: 0.075 MILLIGRAM
     Route: 065
  3. SYNTHROID [Concomitant]
     Active Substance: LEVOTHYROXINE SODIUM
     Dosage: 0.088 MILLIGRAM
     Route: 065

REACTIONS (6)
  - Blood disorder [Unknown]
  - Malabsorption [Unknown]
  - Anticoagulation drug level abnormal [Unknown]
  - Atrial fibrillation [Unknown]
  - Hypoacusis [Unknown]
  - Pollakiuria [Unknown]
